FAERS Safety Report 24294076 (Version 1)
Quarter: 2024Q3

REPORT INFORMATION
  Report Type: Spontaneous
  Country: US (occurrence: US)
  Receive Date: 20240906
  Receipt Date: 20240906
  Transmission Date: 20241016
  Serious: No
  Sender: DOMPE FARMACEUTICI
  Company Number: US-FARMAPROD-202308-202404-1145

PATIENT
  Sex: Female

DRUGS (12)
  1. OXERVATE [Suspect]
     Active Substance: CENEGERMIN-BKBJ
     Indication: Neurotrophic keratopathy
     Route: 047
     Dates: start: 20240223
  2. PATADAY ONCE DAILY RELIEF [Concomitant]
     Active Substance: OLOPATADINE HYDROCHLORIDE
  3. REFRESH CELLUVISC [Concomitant]
     Active Substance: CARBOXYMETHYLCELLULOSE SODIUM
     Indication: Dry eye
     Dosage: DROPER GEL
     Dates: start: 20230213
  4. MELATONIN [Concomitant]
     Active Substance: MELATONIN
  5. ECOTRIN [Concomitant]
     Active Substance: ASPIRIN
  6. CITRACAL + D MAXIMUM [Concomitant]
  7. VERAPAMIL [Concomitant]
     Active Substance: VERAPAMIL HYDROCHLORIDE
     Dosage: CAPSULE, EXTENDED RELEASE PELLETS 24 HR
  8. OMEPRAZOLE [Concomitant]
     Active Substance: OMEPRAZOLE
  9. NIACIN [Concomitant]
     Active Substance: NIACIN
  10. VITAMIN D3 [Concomitant]
     Active Substance: CHOLECALCIFEROL
  11. CLONAZEPAM [Concomitant]
     Active Substance: CLONAZEPAM
     Dosage: TABLET, DISPERSABLE
  12. SPIRONOLACTONE [Concomitant]
     Active Substance: SPIRONOLACTONE

REACTIONS (2)
  - Eye pain [Unknown]
  - Eye swelling [Unknown]
